FAERS Safety Report 10025935 (Version 1)
Quarter: 2014Q1

REPORT INFORMATION
  Report Type: Spontaneous
  Country: US (occurrence: US)
  Receive Date: 20140320
  Receipt Date: 20140320
  Transmission Date: 20141002
  Serious: Yes (Hospitalization)
  Sender: FDA-Public Use
  Company Number: US-JNJFOC-20140312897

PATIENT
  Age: 84 Year
  Sex: Male
  Weight: 56.6 kg

DRUGS (2)
  1. IMBRUVICA [Suspect]
     Indication: CHRONIC LYMPHOCYTIC LEUKAEMIA
     Route: 048
     Dates: start: 20140124, end: 20140223
  2. IMBRUVICA [Suspect]
     Indication: CHRONIC LYMPHOCYTIC LEUKAEMIA
     Route: 048
     Dates: start: 20140311

REACTIONS (2)
  - Dysphagia [Not Recovered/Not Resolved]
  - Pneumonia aspiration [Recovering/Resolving]
